FAERS Safety Report 20080216 (Version 1)
Quarter: 2021Q4

REPORT INFORMATION
  Report Type: Spontaneous
  Country: GB (occurrence: GB)
  Receive Date: 20211117
  Receipt Date: 20211117
  Transmission Date: 20220303
  Serious: Yes (Other)
  Sender: FDA-Public Use
  Company Number: None

PATIENT
  Age: 27 Year
  Sex: Female
  Weight: 62 kg

DRUGS (4)
  1. AMOXICILLIN\CLAVULANIC ACID [Suspect]
     Active Substance: AMOXICILLIN\CLAVULANIC ACID
     Indication: Anaesthesia
     Dates: start: 20211031, end: 20211031
  2. CHLORHEXIDINE [Suspect]
     Active Substance: CHLORHEXIDINE
     Indication: Anaesthesia
     Dates: start: 20211031, end: 20211031
  3. BUPIVACAINE [Suspect]
     Active Substance: BUPIVACAINE
     Indication: Anaesthesia
     Dates: start: 20211031, end: 20211031
  4. ONDANSETRON [Suspect]
     Active Substance: ONDANSETRON
     Indication: Anaesthesia
     Dates: start: 20211031, end: 20211031

REACTIONS (3)
  - Bradycardia [Unknown]
  - Hypersensitivity [Recovered/Resolved]
  - Rash erythematous [Unknown]

NARRATIVE: CASE EVENT DATE: 20211031
